FAERS Safety Report 6425669-1 (Version None)
Quarter: 2009Q4

REPORT INFORMATION
  Report Type: 
  Country: None (occurrence: None)
  Receive Date: 20091103
  Receipt Date: 20091022
  Transmission Date: 20100525
  Serious: Yes (Other)
  Sender: FDA-Public Use
  Company Number: US-WYE-H11785609

PATIENT
  Sex: Female
  Weight: 90.8 kg

DRUGS (9)
  1. EFFEXOR XR [Suspect]
     Indication: DEPRESSION
     Route: 048
     Dates: start: 20040501, end: 20080101
  2. EFFEXOR XR [Suspect]
     Route: 048
     Dates: start: 20080101, end: 20080101
  3. EFFEXOR XR [Suspect]
     Route: 048
     Dates: start: 20080101, end: 20080101
  4. EFFEXOR XR [Suspect]
     Route: 048
     Dates: start: 20080101, end: 20080601
  5. AMANTADINE [Concomitant]
     Dosage: UNKNOWN
     Route: 048
  6. BETASERON [Concomitant]
     Dosage: UNKNOWN DOSE EVERY OTHER DAY
     Route: 030
  7. BACLOFEN [Concomitant]
     Dosage: UNKNOWN
     Route: 048
  8. MAXALT [Concomitant]
     Dosage: UNKNOWN
     Route: 048
  9. ATARAX [Concomitant]
     Dosage: UNKNOWN
     Route: 048

REACTIONS (8)
  - ARRHYTHMIA [None]
  - DRUG WITHDRAWAL SYNDROME [None]
  - HEADACHE [None]
  - LIBIDO DECREASED [None]
  - PANIC ATTACK [None]
  - SUICIDAL IDEATION [None]
  - VOMITING [None]
  - WEIGHT INCREASED [None]
